FAERS Safety Report 17182338 (Version 1)
Quarter: 2019Q4

REPORT INFORMATION
  Report Type: Spontaneous
  Country: US (occurrence: US)
  Receive Date: 20191220
  Receipt Date: 20191220
  Transmission Date: 20200122
  Serious: Yes (Other)
  Sender: FDA-Public Use
  Company Number: US-FRESENIUS KABI-FK201914161

PATIENT

DRUGS (1)
  1. MAGNESIUM SULFATE (MANUFACTURER UNKNOWN) [Suspect]
     Active Substance: MAGNESIUM SULFATE
     Indication: SEIZURE PROPHYLAXIS
     Dosage: UNKNOWN
     Route: 064

REACTIONS (3)
  - Bradycardia foetal [Not Recovered/Not Resolved]
  - Medication error [Unknown]
  - Nervous system disorder [Unknown]
